FAERS Safety Report 16991687 (Version 1)
Quarter: 2019Q4

REPORT INFORMATION
  Report Type: Spontaneous
  Country: US (occurrence: US)
  Receive Date: 20191104
  Receipt Date: 20191104
  Transmission Date: 20200122
  Serious: No
  Sender: FDA-Public Use
  Company Number: US-ROCHE-2184606

PATIENT
  Sex: Female

DRUGS (1)
  1. PULMOZYME [Suspect]
     Active Substance: DORNASE ALFA
     Indication: PRODUCT USED FOR UNKNOWN INDICATION
     Dosage: 1MG/ML AMPOULE.
     Route: 065
     Dates: start: 200503

REACTIONS (3)
  - Dizziness [Unknown]
  - Sinus congestion [Unknown]
  - Headache [Unknown]
